FAERS Safety Report 25199190 (Version 1)
Quarter: 2025Q2

REPORT INFORMATION
  Report Type: Spontaneous
  Country: US (occurrence: None)
  Receive Date: 20250415
  Receipt Date: 20250415
  Transmission Date: 20250717
  Serious: Yes (Disabling, Other)
  Sender: FDA-CTU
  Company Number: None

PATIENT
  Age: 43 Year
  Sex: Male
  Weight: 83.25 kg

DRUGS (2)
  1. TRELEGY ELLIPTA [Suspect]
     Active Substance: FLUTICASONE FUROATE\UMECLIDINIUM BROMIDE\VILANTEROL TRIFENATATE
     Indication: Asthma
     Route: 055
     Dates: start: 20230901, end: 20250401
  2. hydrocortisol [Concomitant]

REACTIONS (2)
  - Fatigue [None]
  - Presyncope [None]

NARRATIVE: CASE EVENT DATE: 20250406
